FAERS Safety Report 13270931 (Version 1)
Quarter: 2017Q1

REPORT INFORMATION
  Report Type: Report from Study
  Country: None (occurrence: CO)
  Receive Date: 20170225
  Receipt Date: 20170225
  Transmission Date: 20170428
  Serious: Yes (Other)
  Sender: FDA-Public Use
  Company Number: CO-ABBVIE-17K-036-1884862-00

PATIENT
  Age: 28 Year
  Sex: Female

DRUGS (1)
  1. HUMIRA [Suspect]
     Active Substance: ADALIMUMAB
     Indication: COLITIS ULCERATIVE
     Route: 058
     Dates: start: 20160328, end: 20170106

REACTIONS (5)
  - Erythema [Recovering/Resolving]
  - Pruritus allergic [Recovering/Resolving]
  - Urticaria [Unknown]
  - Drug hypersensitivity [Recovering/Resolving]
  - Biopsy skin abnormal [Recovering/Resolving]

NARRATIVE: CASE EVENT DATE: 20161209
